FAERS Safety Report 19871859 (Version 1)
Quarter: 2021Q3

REPORT INFORMATION
  Report Type: Spontaneous
  Country: US (occurrence: US)
  Receive Date: 20210923
  Receipt Date: 20210923
  Transmission Date: 20211014
  Serious: No
  Sender: FDA-Public Use
  Company Number: US-SA-2021SA312366

PATIENT
  Age: 58 Year
  Sex: Female
  Weight: 34.9 kg

DRUGS (9)
  1. BACLOFEN. [Concomitant]
     Active Substance: BACLOFEN
     Dosage: UNK
  2. EUCALYPTOL [Concomitant]
     Active Substance: EUCALYPTOL
  3. ASPIRIN 81 [Concomitant]
     Active Substance: ASPIRIN
  4. PLAVIX [Concomitant]
     Active Substance: CLOPIDOGREL BISULFATE
  5. CURCUMIN COMPLEX [Concomitant]
     Dosage: UNK
  6. AUBAGIO [Suspect]
     Active Substance: TERIFLUNOMIDE
     Indication: ILLNESS
     Dosage: 1 DF, QD
     Route: 048
  7. CAT^S CLAW [Concomitant]
     Active Substance: CAT^S CLAW
  8. OXYCODONE HYDROCHLORIDE. [Concomitant]
     Active Substance: OXYCODONE HYDROCHLORIDE
  9. CRESTOR [Concomitant]
     Active Substance: ROSUVASTATIN CALCIUM

REACTIONS (1)
  - Menopausal symptoms [Unknown]
